FAERS Safety Report 25142587 (Version 1)
Quarter: 2025Q1

REPORT INFORMATION
  Report Type: Spontaneous
  Country: JP (occurrence: JP)
  Receive Date: 20250331
  Receipt Date: 20250331
  Transmission Date: 20250409
  Serious: Yes (Other)
  Sender: MERCK SHARP & DOHME LLC
  Company Number: JP-MSD-2406JPN001129JAA

PATIENT
  Age: 78 Year
  Sex: Female

DRUGS (1)
  1. KEYTRUDA [Suspect]
     Active Substance: PEMBROLIZUMAB
     Indication: Ureteric cancer
     Route: 041

REACTIONS (7)
  - Cardiomyopathy [Recovered/Resolved]
  - Immune-mediated adrenal insufficiency [Unknown]
  - Myasthenia gravis [Recovered/Resolved]
  - Hypochloraemia [Unknown]
  - Hypoglycaemia [Unknown]
  - Malaise [Unknown]
  - Hyponatraemia [Unknown]

NARRATIVE: CASE EVENT DATE: 20211126
